FAERS Safety Report 9349812 (Version 1)
Quarter: 2013Q2

REPORT INFORMATION
  Report Type: Spontaneous
  Country: GB (occurrence: None)
  Receive Date: 20130611
  Receipt Date: 20130611
  Transmission Date: 20140414
  Serious: Yes (Other)
  Sender: FDA-Public Use
  Company Number: 1737646

PATIENT
  Age: 74 Year
  Sex: Female
  Weight: 27.22 kg

DRUGS (6)
  1. (GENTAMICIN SULFATE) [Suspect]
     Indication: SEPSIS
     Route: 042
     Dates: start: 20130324, end: 20130324
  2. (TRAMADOL HYDROCHLORIDE) [Concomitant]
  3. (PROCHLORPERAZINE) [Concomitant]
  4. (BETAHISTINE) [Concomitant]
  5. (FLUTICASONE PROPIONATE W/SALMETEROL XINAFOATE) [Concomitant]
  6. (TIOTROPIUM BROMIDE MONOHYDRATE) [Concomitant]

REACTIONS (2)
  - Renal failure acute [None]
  - Organ failure [None]
